FAERS Safety Report 20729711 (Version 1)
Quarter: 2022Q2

REPORT INFORMATION
  Report Type: Report from Study
  Country: US (occurrence: US)
  Receive Date: 20220420
  Receipt Date: 20220420
  Transmission Date: 20220721
  Serious: Yes (Death, Other)
  Sender: FDA-Public Use
  Company Number: US-MYLANLABS-2022M1028622

PATIENT
  Age: 88 Year
  Sex: Female

DRUGS (6)
  1. TACROLIMUS [Suspect]
     Active Substance: TACROLIMUS
     Indication: Immunosuppressant drug therapy
     Dosage: UNK
     Route: 065
     Dates: start: 200202
  2. MYCOPHENOLATE MOFETIL [Suspect]
     Active Substance: MYCOPHENOLATE MOFETIL
     Indication: Immunosuppressant drug therapy
     Dosage: UNK
     Route: 065
     Dates: start: 200202
  3. TEMOZOLOMIDE [Suspect]
     Active Substance: TEMOZOLOMIDE
     Indication: Post transplant lymphoproliferative disorder
     Dosage: UNK (THE PATIENT RECEIVED SEVEN CYCLES OF TEMOZOLOMIDE EVERY 28 DAYS)
     Route: 065
  4. TEMOZOLOMIDE [Suspect]
     Active Substance: TEMOZOLOMIDE
     Indication: Immunosuppressant drug therapy
  5. BASILIXIMAB [Suspect]
     Active Substance: BASILIXIMAB
     Indication: Immunosuppressant drug therapy
     Dosage: UNK
     Route: 065
     Dates: start: 200202
  6. RITUXIMAB [Suspect]
     Active Substance: RITUXIMAB
     Indication: Post transplant lymphoproliferative disorder
     Dosage: UNK, CYCLE (THE PATIENT RECEIVED FOUR CYCLES OF RITUXIMAB FOR FOUR WEEKS)
     Route: 065

REACTIONS (2)
  - Sepsis [Fatal]
  - Post transplant lymphoproliferative disorder [Unknown]

NARRATIVE: CASE EVENT DATE: 20200201
